FAERS Safety Report 17863822 (Version 1)
Quarter: 2020Q2

REPORT INFORMATION
  Report Type: Other
  Country: IT (occurrence: IT)
  Receive Date: 20200605
  Receipt Date: 20200605
  Transmission Date: 20200714
  Serious: Yes (Death)
  Sender: FDA-Public Use
  Company Number: IT-HEALTHCARE PHARMACEUTICALS LTD.-2085476

PATIENT

DRUGS (4)
  1. ETOPOSIDE. [Suspect]
     Active Substance: ETOPOSIDE
     Route: 042
  2. DOXORUBICIN HYDROCHLORIDE. [Suspect]
     Active Substance: DOXORUBICIN HYDROCHLORIDE
     Indication: ADRENOCORTICAL CARCINOMA
     Route: 042
  3. MITOTANE [Suspect]
     Active Substance: MITOTANE
     Route: 065
  4. CISPLATIN. [Suspect]
     Active Substance: CISPLATIN
     Route: 042

REACTIONS (2)
  - Shock haemorrhagic [Fatal]
  - Gastric haemorrhage [Fatal]
